FAERS Safety Report 6189860-4 (Version None)
Quarter: 2009Q2

REPORT INFORMATION
  Report Type: 
  Country: None (occurrence: None)
  Receive Date: 20090512
  Receipt Date: 20090512
  Transmission Date: 20091009
  Serious: Yes (Hospitalization, Other)
  Sender: FDA-Public Use
  Company Number: None

PATIENT
  Age: 41 Year
  Sex: Female
  Weight: 114.3065 kg

DRUGS (1)
  1. CRESTOR [Suspect]
     Indication: BLOOD CHOLESTEROL INCREASED
     Dosage: 1 TABLET 1 A DAY PO
     Route: 048
     Dates: start: 20090414, end: 20090422

REACTIONS (15)
  - BACK PAIN [None]
  - BLOOD POTASSIUM DECREASED [None]
  - CHEST PAIN [None]
  - CONTUSION [None]
  - CRYING [None]
  - DRUG INEFFECTIVE [None]
  - EAR INFECTION [None]
  - FEAR [None]
  - FEELING COLD [None]
  - HYPERHIDROSIS [None]
  - LYME DISEASE [None]
  - PAIN [None]
  - PRURITUS [None]
  - RASH [None]
  - VIRAL INFECTION [None]
